FAERS Safety Report 8208364-8 (Version None)
Quarter: 2012Q1

REPORT INFORMATION
  Report Type: 
  Country: None (occurrence: None)
  Receive Date: 20120314
  Receipt Date: 20120309
  Transmission Date: 20120608
  Serious: Yes (Other)
  Sender: FDA-Public Use
  Company Number: IT-AMGEN-ITASP2012006605

PATIENT
  Age: 72 Year
  Sex: Female

DRUGS (2)
  1. DIBASE [Concomitant]
     Dosage: UNK UNK, QWK
     Route: 048
  2. PROLIA [Suspect]
     Indication: OSTEOPOROSIS POSTMENOPAUSAL
     Dosage: 60 MG, Q6MO
     Route: 058
     Dates: start: 20111028, end: 20111028

REACTIONS (1)
  - OSTEOMYELITIS [None]
